FAERS Safety Report 4582265-9 (Version None)
Quarter: 2005Q1

REPORT INFORMATION
  Report Type: 
  Country: None (occurrence: None)
  Receive Date: 20050127
  Receipt Date: 20040924
  Transmission Date: 20050727
  Serious: No
  Sender: FDA-Public Use
  Company Number: USA040979246

PATIENT
  Age: 7 Year
  Sex: Male
  Weight: 18 kg

DRUGS (2)
  1. STRATTERA [Suspect]
     Indication: ATTENTION DEFICIT/HYPERACTIVITY DISORDER
     Dosage: 28 MG
     Dates: start: 20040901
  2. RITALIN [Concomitant]

REACTIONS (3)
  - DRUG INEFFECTIVE [None]
  - FATIGUE [None]
  - PRESCRIBED OVERDOSE [None]
